FAERS Safety Report 5470228-0 (Version None)
Quarter: 2007Q3

REPORT INFORMATION
  Report Type: 
  Country: None (occurrence: None)
  Receive Date: 20070927
  Receipt Date: 20070919
  Transmission Date: 20080115
  Serious: Yes (Other)
  Sender: FDA-Public Use
  Company Number: JP-MERCK-0709USA03841

PATIENT
  Age: 70 Year
  Sex: Female

DRUGS (4)
  1. ZETIA [Suspect]
     Indication: HYPERCHOLESTEROLAEMIA
     Route: 048
     Dates: start: 20070806, end: 20070904
  2. AMLODIPINE BESYLATE [Concomitant]
     Indication: HYPERCHOLESTEROLAEMIA
     Route: 065
  3. PRAVASTATIN SODIUM [Concomitant]
     Route: 065
  4. TIZANIDINE HYDROCHLORIDE [Concomitant]
     Route: 065
     Dates: start: 20070806

REACTIONS (1)
  - HEPATIC FUNCTION ABNORMAL [None]
